FAERS Safety Report 5269567-8 (Version None)
Quarter: 2007Q1

REPORT INFORMATION
  Report Type: 
  Country: None (occurrence: None)
  Receive Date: 20061213
  Receipt Date: 20061124
  Transmission Date: 20070707
  Serious: Yes (Other)
  Sender: FDA-Public Use
  Company Number: 2003UW13704

PATIENT
  Age: 65 Year
  Sex: Female
  Weight: 73.0291 kg

DRUGS (9)
  1. IRESSA [Suspect]
     Indication: NON-SMALL CELL LUNG CANCER
     Dosage: 250 MG QD PO
     Route: 048
     Dates: start: 20031001
  2. COUMADIN [Concomitant]
  3. PAXIL [Concomitant]
  4. VERAPAMIL [Concomitant]
  5. LEVOTHYROXINE SODIUM [Concomitant]
  6. AMBIEN [Concomitant]
  7. DILAUDID [Concomitant]
  8. FENTANYL [Concomitant]
  9. NEURONTIN [Concomitant]

REACTIONS (1)
  - MUCOSAL INFLAMMATION [None]
